FAERS Safety Report 21034043 (Version 1)
Quarter: 2022Q3

REPORT INFORMATION
  Report Type: Spontaneous
  Country: US (occurrence: None)
  Receive Date: 20220701
  Receipt Date: 20220701
  Transmission Date: 20221026
  Serious: Yes (Disabling)
  Sender: FDA-Public Use
  Company Number: None

PATIENT
  Age: 55 Year
  Sex: Female
  Weight: 63 kg

DRUGS (8)
  1. RHOPRESSA [Suspect]
     Active Substance: NETARSUDIL MESYLATE
     Indication: Glaucoma
     Dosage: OTHER QUANTITY : 1 DROP(S);?FREQUENCY : AT BEDTIME;?
     Route: 047
     Dates: start: 20220617, end: 20220628
  2. LATANOPROST [Concomitant]
     Active Substance: LATANOPROST
  3. TIMOLOL [Concomitant]
     Active Substance: TIMOLOL
  4. I-plex [Concomitant]
  5. min-chex [Concomitant]
  6. tuna omega-3 oil [Concomitant]
  7. HYPOTHALMEX [Concomitant]
  8. CLNZ [Concomitant]

REACTIONS (5)
  - Ocular hyperaemia [None]
  - Dry eye [None]
  - Superficial injury of eye [None]
  - Vision blurred [None]
  - Headache [None]

NARRATIVE: CASE EVENT DATE: 20220618
